FAERS Safety Report 4819484-X (Version None)
Quarter: 2005Q4

REPORT INFORMATION
  Report Type: 
  Country: None (occurrence: None)
  Receive Date: 20051031
  Receipt Date: 20050707
  Transmission Date: 20060501
  Serious: No
  Sender: FDA-Public Use
  Company Number: 2005PV000297

PATIENT
  Age: 65 Year
  Sex: Male
  Weight: 97.2966 kg

DRUGS (10)
  1. SYMLIN [Suspect]
     Indication: DIABETES MELLITUS NON-INSULIN-DEPENDENT
     Dosage: 60 UG; TID; SC
     Route: 058
     Dates: start: 20050627
  2. NORVASC [Concomitant]
  3. LIPITOR [Concomitant]
  4. ACCUPRIL [Concomitant]
  5. TRICOR [Concomitant]
  6. OMEPRAZOLE [Concomitant]
  7. BENICAR [Concomitant]
  8. NASAREL [Concomitant]
  9. HUMALOG [Concomitant]
  10. LANTUS [Concomitant]

REACTIONS (5)
  - BLOOD GLUCOSE DECREASED [None]
  - ERUCTATION [None]
  - FATIGUE [None]
  - NAUSEA [None]
  - WEIGHT DECREASED [None]
